FAERS Safety Report 20032775 (Version 3)
Quarter: 2021Q4

REPORT INFORMATION
  Report Type: Report from Study
  Country: CH (occurrence: CH)
  Receive Date: 20211104
  Receipt Date: 20211118
  Transmission Date: 20220304
  Serious: Yes (Hospitalization)
  Sender: FDA-Public Use
  Company Number: CH-ABBVIE-20K-151-3587353-00

PATIENT
  Age: 64 Year
  Sex: Female
  Weight: 88 kg

DRUGS (17)
  1. SKYRIZI [Suspect]
     Active Substance: RISANKIZUMAB-RZAA
     Indication: Psoriasis
     Route: 058
     Dates: start: 20200529, end: 20200914
  2. SKYRIZI [Suspect]
     Active Substance: RISANKIZUMAB-RZAA
     Route: 058
     Dates: start: 2020, end: 20201216
  3. BETAMETHASONE [Concomitant]
     Active Substance: BETAMETHASONE
     Indication: Psoriasis
     Route: 061
     Dates: start: 20210107
  4. ANTIDRY BATH [Concomitant]
     Indication: Psoriasis
     Route: 061
     Dates: start: 2016, end: 202001
  5. ANTIDRY BATH [Concomitant]
     Indication: Dry skin
     Route: 061
     Dates: start: 202105
  6. DAFALGAN [Concomitant]
     Active Substance: ACETAMINOPHEN
     Indication: Back pain
     Dosage: 1 IN THE MORNING, 1 IN THE EVENING
     Route: 048
     Dates: start: 2014
  7. DAFALGAN [Concomitant]
     Active Substance: ACETAMINOPHEN
     Indication: Intervertebral disc protrusion
  8. BETAHISTINE [Concomitant]
     Active Substance: BETAHISTINE
     Indication: Vertigo
     Dosage: 1 IN THE MORNING
     Route: 048
     Dates: start: 2010
  9. BETAHISTINE [Concomitant]
     Active Substance: BETAHISTINE
     Indication: Tinnitus
  10. EXCIPIAL U LIPOLOTIO [Concomitant]
     Indication: Psoriasis
     Dosage: DAILY
     Route: 061
     Dates: start: 20200107
  11. ENSTILAR [Concomitant]
     Active Substance: BETAMETHASONE DIPROPIONATE\CALCIPOTRIENE HYDRATE
     Indication: Psoriasis
     Dosage: FOAM
     Route: 061
     Dates: start: 20200107
  12. BUTYLSCOPOLAMINE BROMIDE [Concomitant]
     Active Substance: BUTYLSCOPOLAMINE BROMIDE
     Indication: Abdominal pain
     Dosage: AS NEEDED
     Dates: start: 20200602
  13. BIOFLORIN [Concomitant]
     Indication: Diarrhoea
  14. PROTOPIC [Concomitant]
     Active Substance: TACROLIMUS
     Indication: Skin plaque
     Dosage: AS NEEDED
     Route: 061
     Dates: start: 20200629
  15. CALCIPOTRIENE [Concomitant]
     Active Substance: CALCIPOTRIENE
     Indication: Psoriasis
     Route: 061
     Dates: start: 20210107
  16. NEOTIGASON [Concomitant]
     Active Substance: ACITRETIN
     Indication: Product used for unknown indication
     Route: 048
     Dates: start: 20200107, end: 20200520
  17. OPTIDERM F [Concomitant]
     Indication: Dry skin
     Dosage: CREAM OR LOTION
     Route: 061
     Dates: start: 202104

REACTIONS (8)
  - Cholecystitis [Recovered/Resolved]
  - Cholelithiasis [Recovered/Resolved]
  - Abdominal pain [Unknown]
  - Diarrhoea [Not Recovered/Not Resolved]
  - Sleep disorder [Not Recovered/Not Resolved]
  - Chest pain [Not Recovered/Not Resolved]
  - Hepatic cyst [Unknown]
  - Headache [Recovered/Resolved]

NARRATIVE: CASE EVENT DATE: 20200101
